FAERS Safety Report 21735317 (Version 2)
Quarter: 2023Q2

REPORT INFORMATION
  Report Type: Spontaneous
  Country: US (occurrence: US)
  Receive Date: 20221215
  Receipt Date: 20230410
  Transmission Date: 20230722
  Serious: Yes (Death, Other)
  Sender: FDA-Public Use
  Company Number: US-PFIZER INC-PV202200123812

PATIENT
  Age: 77 Year
  Sex: Male
  Weight: 92.063 kg

DRUGS (2)
  1. BRAFTOVI [Suspect]
     Active Substance: ENCORAFENIB
     Indication: Metastatic malignant melanoma
     Dosage: 450 MG (75MG 6X/DAY)
     Dates: start: 20220607, end: 20221101
  2. MEKTOVI [Suspect]
     Active Substance: BINIMETINIB
     Indication: Metastatic malignant melanoma
     Dosage: 45 MG, 2X/DAY
     Dates: start: 20220607, end: 20221101

REACTIONS (1)
  - Death [Fatal]

NARRATIVE: CASE EVENT DATE: 20221118
